FAERS Safety Report 15813710 (Version 1)
Quarter: 2019Q1

REPORT INFORMATION
  Report Type: Spontaneous
  Country: US (occurrence: US)
  Receive Date: 20190111
  Receipt Date: 20190111
  Transmission Date: 20190417
  Serious: Yes (Other)
  Sender: FDA-Public Use
  Company Number: None

PATIENT
  Age: 53 Year
  Sex: Female
  Weight: 68.85 kg

DRUGS (2)
  1. MULTIVITAMIN [Concomitant]
     Active Substance: VITAMINS
  2. PAROXETINE 10 MG (GENERIC FOR PAXIL) [Suspect]
     Active Substance: PAROXETINE HYDROCHLORIDE
     Indication: ANXIETY
     Dosage: ?          QUANTITY:1 TABLET(S);?
     Route: 048
     Dates: start: 20190108, end: 20190109

REACTIONS (9)
  - Influenza like illness [None]
  - Hypersensitivity [None]
  - Diarrhoea [None]
  - Dry mouth [None]
  - Vision blurred [None]
  - Yawning [None]
  - Mydriasis [None]
  - Abdominal discomfort [None]
  - Somnolence [None]

NARRATIVE: CASE EVENT DATE: 20190108
